FAERS Safety Report 17440820 (Version 1)
Quarter: 2020Q1

REPORT INFORMATION
  Report Type: Spontaneous
  Country: GB (occurrence: GB)
  Receive Date: 20200220
  Receipt Date: 20200220
  Transmission Date: 20200409
  Serious: Yes (Other)
  Sender: FDA-Public Use
  Company Number: GB-PFIZER INC-2020071407

PATIENT
  Age: 64 Year
  Sex: Female
  Weight: 83.6 kg

DRUGS (1)
  1. IRINOTECAN HCL [Suspect]
     Active Substance: IRINOTECAN HYDROCHLORIDE
     Indication: COLORECTAL CANCER
     Dosage: 360 MG, UNK
     Route: 042
     Dates: start: 20200123, end: 20200123

REACTIONS (6)
  - Erythema [Recovered/Resolved]
  - Acute respiratory distress syndrome [Recovered/Resolved]
  - Heart rate increased [Unknown]
  - Oxygen saturation decreased [Recovered/Resolved]
  - Wheezing [Recovered/Resolved]
  - Feeling hot [Recovered/Resolved]

NARRATIVE: CASE EVENT DATE: 20200123
